FAERS Safety Report 23943089 (Version 1)
Quarter: 2024Q2

REPORT INFORMATION
  Report Type: Spontaneous
  Country: GB (occurrence: GB)
  Receive Date: 20240605
  Receipt Date: 20240605
  Transmission Date: 20240716
  Serious: Yes (Other)
  Sender: FDA-Public Use
  Company Number: GB-MYLANLABS-2024M1050268

PATIENT
  Sex: Male

DRUGS (1)
  1. TOBI PODHALER [Suspect]
     Active Substance: TOBRAMYCIN
     Indication: Cystic fibrosis
     Dosage: 112 MILLIGRAM, BID (ALTERNATE MONTHS)
     Route: 055
     Dates: start: 20240209, end: 20240601

REACTIONS (5)
  - Lower respiratory tract infection [Unknown]
  - Product dose omission issue [Unknown]
  - Vomiting [Unknown]
  - Eating disorder [Unknown]
  - Memory impairment [Unknown]
